FAERS Safety Report 23871020 (Version 3)
Quarter: 2024Q2

REPORT INFORMATION
  Report Type: Report from Study
  Country: GB (occurrence: GB)
  Receive Date: 20240518
  Receipt Date: 20240606
  Transmission Date: 20240715
  Serious: Yes (Death, Life-Threatening, Hospitalization, Other)
  Sender: FDA-Public Use
  Company Number: GB-JNJFOC-20240520801

PATIENT
  Age: 74 Year
  Sex: Male
  Weight: 66.5 kg

DRUGS (4)
  1. TECLISTAMAB [Suspect]
     Active Substance: TECLISTAMAB
     Indication: Plasma cell myeloma
     Route: 058
     Dates: start: 20221229
  2. TECLISTAMAB [Suspect]
     Active Substance: TECLISTAMAB
     Dosage: STEP-UP DOSE 2
     Route: 058
     Dates: start: 20221231
  3. TECLISTAMAB [Suspect]
     Active Substance: TECLISTAMAB
     Dosage: FIRST MAINTENANCE DOSE
     Route: 058
     Dates: start: 20230103
  4. COTRIMOXAZOLE [Concomitant]
     Active Substance: SULFAMETHOXAZOLE\TRIMETHOPRIM
     Indication: Infection prophylaxis
     Route: 065
     Dates: start: 20230418

REACTIONS (9)
  - Septic shock [Fatal]
  - Klebsiella bacteraemia [Fatal]
  - Soft tissue infection [Fatal]
  - Plasma cell myeloma [Fatal]
  - Cystoid macular oedema [Fatal]
  - Immunosuppression [Fatal]
  - Neutropenic sepsis [Not Recovered/Not Resolved]
  - Neutropenia [Not Recovered/Not Resolved]
  - Lower respiratory tract infection [Not Recovered/Not Resolved]

NARRATIVE: CASE EVENT DATE: 20230309
